FAERS Safety Report 20260017 (Version 2)
Quarter: 2022Q1

REPORT INFORMATION
  Report Type: Spontaneous
  Country: US (occurrence: US)
  Receive Date: 20211230
  Receipt Date: 20220116
  Transmission Date: 20220423
  Serious: No
  Sender: FDA-Public Use
  Company Number: US-BEH-2021139947

PATIENT
  Age: 28 Year
  Sex: Female
  Weight: 89.9 kg

DRUGS (9)
  1. PRIVIGEN [Suspect]
     Active Substance: HUMAN IMMUNOGLOBULIN G
     Dosage: UNK
     Route: 065
     Dates: start: 2012
  2. PRIVIGEN [Suspect]
     Active Substance: HUMAN IMMUNOGLOBULIN G
     Dosage: UNK
     Route: 065
     Dates: start: 2013
  3. PRIVIGEN [Suspect]
     Active Substance: HUMAN IMMUNOGLOBULIN G
     Dosage: 60-80 GRAMS, QMT
     Route: 042
     Dates: start: 20180620
  4. PRIVIGEN [Suspect]
     Active Substance: HUMAN IMMUNOGLOBULIN G
     Dosage: UNK
     Route: 065
     Dates: start: 20211223
  5. CELECOXIB [Concomitant]
     Active Substance: CELECOXIB
     Indication: Still^s disease
     Dosage: 100 MILLIGRAM, BID
     Route: 048
     Dates: start: 20210406
  6. FOLVITE [FOLIC ACID] [Concomitant]
     Indication: Still^s disease
     Dosage: 1 MILLIGRAM, QD
     Route: 048
     Dates: start: 20201008
  7. PLAQUENIL [Concomitant]
     Active Substance: HYDROXYCHLOROQUINE SULFATE
     Indication: Still^s disease
     Dosage: 200 MILLIGRAM, BID
     Route: 048
     Dates: start: 20211029
  8. METHOTREXATE [Concomitant]
     Active Substance: METHOTREXATE
     Indication: Still^s disease
     Dosage: 25 MILLIGRAM, QW
     Route: 048
     Dates: start: 20210521
  9. PRILOSEC [Concomitant]
     Active Substance: OMEPRAZOLE MAGNESIUM
     Indication: Gastrooesophageal reflux disease
     Dosage: 20 MILLIGRAM, QD
     Route: 048
     Dates: start: 20190605

REACTIONS (3)
  - Hypersensitivity [Recovered/Resolved]
  - Urticaria [Recovered/Resolved]
  - Pruritus [Recovered/Resolved]

NARRATIVE: CASE EVENT DATE: 20211223
